FAERS Safety Report 5679828-6 (Version None)
Quarter: 2008Q1

REPORT INFORMATION
  Report Type: 
  Country: None (occurrence: None)
  Receive Date: 20080324
  Receipt Date: 20080311
  Transmission Date: 20080703
  Serious: Yes (Hospitalization, Other)
  Sender: FDA-Public Use
  Company Number: 2008SP002007

PATIENT
  Age: 60 Year
  Sex: Female
  Weight: 48.0813 kg

DRUGS (7)
  1. PEG-INTRON [Suspect]
     Indication: HEPATITIS C
     Dosage: 64 MCG; QW; SC
     Route: 058
     Dates: start: 20070913, end: 20080110
  2. RIBAVIRIN [Suspect]
     Indication: HEPATITIS C
     Dosage: 800 MG; QD; PO
     Route: 048
     Dates: start: 20070913, end: 20080110
  3. FUROSEMIDE [Concomitant]
  4. OXYCODONE HCL [Concomitant]
  5. ACETAMINOPHEN [Concomitant]
  6. TOPIRAMATE [Concomitant]
  7. CULTURELLE [Concomitant]

REACTIONS (6)
  - CEREBROVASCULAR ACCIDENT [None]
  - DEEP VEIN THROMBOSIS [None]
  - FATIGUE [None]
  - HEADACHE [None]
  - HEMIANOPIA HOMONYMOUS [None]
  - VERTIGO [None]
